FAERS Safety Report 18614896 (Version 1)
Quarter: 2020Q4

REPORT INFORMATION
  Report Type: Spontaneous
  Country: US (occurrence: US)
  Receive Date: 20201214
  Receipt Date: 20201214
  Transmission Date: 20210114
  Serious: Yes (Hospitalization, Other)
  Sender: FDA-Public Use
  Company Number: US-TAKEDA-2020TUS056577

PATIENT
  Sex: Male
  Weight: 98 kg

DRUGS (1)
  1. NINLARO [Suspect]
     Active Substance: IXAZOMIB CITRATE
     Indication: PLASMA CELL MYELOMA
     Dosage: 4 MILLIGRAM
     Route: 065

REACTIONS (7)
  - Spinal compression fracture [Unknown]
  - Head injury [Unknown]
  - Urinary tract infection [Unknown]
  - Weight decreased [Unknown]
  - Choking [Unknown]
  - Dementia [Unknown]
  - Fall [Unknown]
